FAERS Safety Report 6432553-6 (Version None)
Quarter: 2009Q4

REPORT INFORMATION
  Report Type: 
  Country: None (occurrence: None)
  Receive Date: 20091105
  Receipt Date: 20091022
  Transmission Date: 20100525
  Serious: Yes (Hospitalization, Disabling, Other)
  Sender: FDA-Public Use
  Company Number: 2009AP004279

PATIENT
  Age: 27 Year
  Sex: Male

DRUGS (3)
  1. RISPERIDONE [Suspect]
     Dosage: 2 MG; PO, 2 MG; TAB; PO
     Route: 048
     Dates: end: 20090801
  2. PROPRANOLOL [Concomitant]
  3. VENLAFAXINE HCL [Concomitant]

REACTIONS (2)
  - AGGRESSION [None]
  - NEUROLEPTIC MALIGNANT SYNDROME [None]
